FAERS Safety Report 7305435-5 (Version None)
Quarter: 2011Q1

REPORT INFORMATION
  Report Type: 
  Country: None (occurrence: None)
  Receive Date: 20110222
  Receipt Date: 20110217
  Transmission Date: 20110831
  Serious: Yes (Hospitalization)
  Sender: FDA-Public Use
  Company Number: US-PFIZER INC-2011035817

PATIENT
  Sex: Female
  Weight: 49.8 kg

DRUGS (2)
  1. OXYGEN [Concomitant]
     Dosage: UNK
  2. ADVIL [Suspect]
     Indication: PAIN
     Dosage: 100 MG, 3-4 TIMES DAILY
     Route: 048

REACTIONS (3)
  - MALAISE [None]
  - KNEE OPERATION [None]
  - PAIN [None]
